FAERS Safety Report 10442648 (Version 1)
Quarter: 2014Q3

REPORT INFORMATION
  Report Type: Spontaneous
  Country: IT (occurrence: None)
  Receive Date: 20140908
  Receipt Date: 20140908
  Transmission Date: 20150326
  Serious: Yes (Other)
  Sender: FDA-Public Use
  Company Number: 7318138

PATIENT
  Age: 53 Year
  Sex: Male

DRUGS (11)
  1. HUMALOG (INSULIN) [Concomitant]
  2. URSOBIL (URSODEOXYCHOLIC ACID) [Concomitant]
  3. EUTIROX [Suspect]
     Active Substance: LEVOTHYROXINE SODIUM
     Indication: GOITRE
     Route: 048
     Dates: start: 20140401, end: 20140708
  4. METOFORMIN [Concomitant]
  5. LANSOPRAZOLE. [Concomitant]
     Active Substance: LANSOPRAZOLE
  6. LUVION (CANRENOIC ACID) [Concomitant]
     Active Substance: CANRENOIC ACID
  7. LEVEMIR [Concomitant]
     Active Substance: INSULIN DETEMIR
  8. LASIX / FUROSEMIDE [Concomitant]
  9. ZYLORIC (ALLOPURINOL) [Concomitant]
     Active Substance: ALLOPURINOL
  10. FOLIC ACID. [Concomitant]
     Active Substance: FOLIC ACID
  11. ARIXTRA [Concomitant]
     Active Substance: FONDAPARINUX SODIUM

REACTIONS (1)
  - Hyperthyroidism [None]

NARRATIVE: CASE EVENT DATE: 20140708
